FAERS Safety Report 9236135 (Version 1)
Quarter: 2013Q2

REPORT INFORMATION
  Report Type: Spontaneous
  Country: US (occurrence: US)
  Receive Date: 20130417
  Receipt Date: 20130417
  Transmission Date: 20140414
  Serious: No
  Sender: FDA-Public Use
  Company Number: US-BAYER-2013-043675

PATIENT
  Sex: Female

DRUGS (2)
  1. MIRENA [Suspect]
     Dosage: 20 MCG/24HR, CONT
     Route: 015
     Dates: start: 20130301, end: 20130301
  2. MONONESSA-28 [Suspect]
     Indication: CONTRACEPTION

REACTIONS (2)
  - Procedural pain [None]
  - Menstruation delayed [None]
